FAERS Safety Report 6710308-2 (Version None)
Quarter: 2010Q2

REPORT INFORMATION
  Report Type: 
  Country: None (occurrence: None)
  Receive Date: 20100504
  Receipt Date: 20100420
  Transmission Date: 20101027
  Serious: Yes (Other)
  Sender: FDA-Public Use
  Company Number: GR-MYLANLABS-2010S1006721

PATIENT
  Age: 52 Year
  Sex: Female

DRUGS (2)
  1. FLUOXETINE [Suspect]
     Indication: ANTIDEPRESSANT THERAPY
     Dosage: 60 MG/DAY
     Route: 065
  2. ALPRAZOLAM [Concomitant]
     Indication: ANTIDEPRESSANT THERAPY
     Dosage: 1.5MG DAILY
     Route: 065

REACTIONS (2)
  - EXTRAPYRAMIDAL DISORDER [None]
  - SUICIDAL IDEATION [None]
